FAERS Safety Report 23461939 (Version 1)
Quarter: 2024Q1

REPORT INFORMATION
  Report Type: Spontaneous
  Country: US (occurrence: None)
  Receive Date: 20240130
  Receipt Date: 20240130
  Transmission Date: 20240409
  Serious: Yes (Hospitalization)
  Sender: FDA-Public Use
  Company Number: None

PATIENT
  Age: 62 Year
  Sex: Male
  Weight: 93.8 kg

DRUGS (1)
  1. MULTIHANCE [Suspect]
     Active Substance: GADOBENATE DIMEGLUMINE
     Indication: Magnetic resonance imaging
     Dosage: FREQUENCY : ONCE;?
     Route: 042
     Dates: start: 20231218, end: 20231218

REACTIONS (9)
  - Anaphylactic reaction [None]
  - Cardiac arrest [None]
  - Cyanosis [None]
  - Unresponsive to stimuli [None]
  - Pulse absent [None]
  - Agonal respiration [None]
  - Bradycardia [None]
  - Confusional state [None]
  - Contrast media reaction [None]

NARRATIVE: CASE EVENT DATE: 20231218
